FAERS Safety Report 8086103-1 (Version None)
Quarter: 2012Q1

REPORT INFORMATION
  Report Type: 
  Country: None (occurrence: None)
  Receive Date: 20120128
  Receipt Date: 20110412
  Transmission Date: 20120608
  Serious: No
  Sender: FDA-Public Use
  Company Number: US-ABBOTT-11P-163-0718947-00

PATIENT
  Sex: Female
  Weight: 95.34 kg

DRUGS (11)
  1. METFFORMIN HYDROCHLORIDE [Concomitant]
     Indication: DIABETES MELLITUS
  2. LISINOPRIL [Concomitant]
     Indication: HYPERTENSION
  3. CARVEDILOL [Concomitant]
     Indication: HYPERTENSION
  4. FLEXERIL [Concomitant]
     Indication: PAIN
  5. HUMIRA [Suspect]
     Indication: PSORIASIS
     Dates: start: 20110401
  6. DOCUSET [Concomitant]
     Indication: CONSTIPATION PROPHYLAXIS
  7. OMEPRAZOLE [Concomitant]
     Indication: GASTROOESOPHAGEAL REFLUX DISEASE
  8. HUMIRA [Suspect]
     Indication: RHEUMATOID ARTHRITIS
  9. SIMVASTATIN [Concomitant]
     Indication: BLOOD CHOLESTEROL INCREASED
  10. FUROSEMIDE [Concomitant]
     Indication: HYPERTENSION
  11. ASPIRIN [Concomitant]
     Indication: THROMBOSIS PROPHYLAXIS

REACTIONS (1)
  - INJECTION SITE PAIN [None]
